FAERS Safety Report 23981499 (Version 1)
Quarter: 2024Q2

REPORT INFORMATION
  Report Type: Spontaneous
  Country: CN (occurrence: CN)
  Receive Date: 20240617
  Receipt Date: 20240617
  Transmission Date: 20240715
  Serious: Yes (Other)
  Sender: FDA-Public Use
  Company Number: CN-PFIZER INC-PV202400078100

PATIENT
  Age: 71 Year
  Sex: Male
  Weight: 70 kg

DRUGS (3)
  1. TIGECYCLINE [Suspect]
     Active Substance: TIGECYCLINE
     Indication: Pneumonia
     Dosage: 200 MG (FIRST DOSE)
     Route: 041
     Dates: start: 20240518, end: 20240518
  2. TIGECYCLINE [Suspect]
     Active Substance: TIGECYCLINE
     Indication: Septic shock
     Dosage: 100 MG, 2X/DAY
     Route: 041
     Dates: start: 20240519, end: 20240523
  3. SODIUM CHLORIDE [Concomitant]
     Active Substance: SODIUM CHLORIDE
     Indication: Vehicle solution use
     Dosage: 100 ML, 2X/DAY
     Route: 041
     Dates: start: 20240519, end: 20240523

REACTIONS (7)
  - Diarrhoea [Recovering/Resolving]
  - Blood fibrinogen decreased [Recovering/Resolving]
  - Dyspepsia [Unknown]
  - Impaired gastric emptying [Unknown]
  - Anaemia [Recovering/Resolving]
  - Platelet count decreased [Unknown]
  - Off label use [Unknown]

NARRATIVE: CASE EVENT DATE: 20240518
